FAERS Safety Report 4963318-X (Version None)
Quarter: 2006Q1

REPORT INFORMATION
  Report Type: 
  Country: None (occurrence: None)
  Receive Date: 20060331
  Receipt Date: 20060321
  Transmission Date: 20060701
  Serious: Yes (Hospitalization)
  Sender: FDA-Public Use
  Company Number: US-2006-005191

PATIENT
  Age: 27 Year
  Sex: Male
  Weight: 62 kg

DRUGS (5)
  1. BETASERON [Suspect]
     Indication: SECONDARY PROGRESSIVE MULTIPLE SCLEROSIS
     Dosage: 8 MIU, EVERY 2D, SUBCUTANEOUS
     Route: 058
     Dates: start: 20020501
  2. BACLOFEN [Concomitant]
  3. ZANAFLEX [Concomitant]
  4. METOPROLOL [Concomitant]
  5. STOOL SOFTENER (DOCUSATE SODIUM) [Concomitant]

REACTIONS (15)
  - ABSCESS [None]
  - ATELECTASIS [None]
  - BODY TEMPERATURE INCREASED [None]
  - DIARRHOEA [None]
  - FATIGUE [None]
  - HYPERTONIA [None]
  - INJECTION SITE PAIN [None]
  - INJECTION SITE SWELLING [None]
  - MASS [None]
  - MUSCLE SPASMS [None]
  - PNEUMONIA [None]
  - RASH [None]
  - SKIN LESION [None]
  - STAPHYLOCOCCAL INFECTION [None]
  - TACHYCARDIA [None]
